FAERS Safety Report 7351376-7 (Version None)
Quarter: 2011Q1

REPORT INFORMATION
  Report Type: 
  Country: None (occurrence: None)
  Receive Date: 20110314
  Receipt Date: 20110308
  Transmission Date: 20110831
  Serious: Yes (Life-Threatening, Hospitalization, Other)
  Sender: FDA-Public Use
  Company Number: PHHY2010US83371

PATIENT
  Sex: Female
  Weight: 44.444 kg

DRUGS (3)
  1. SANDOSTATIN LAR [Suspect]
     Indication: METASTATIC CARCINOID TUMOUR
     Dosage: 30 MG, UNK
     Route: 030
  2. SANDOSTATIN LAR [Suspect]
     Dosage: 60 MG EVERY WEEK
     Route: 030
     Dates: start: 20091116, end: 20101119
  3. SANDOSTATIN LAR [Suspect]
     Dosage: UNK

REACTIONS (7)
  - GENERAL PHYSICAL HEALTH DETERIORATION [None]
  - ABDOMINAL DISTENSION [None]
  - PROTEINURIA [None]
  - ARTHRALGIA [None]
  - OEDEMA PERIPHERAL [None]
  - FLUID RETENTION [None]
  - PERIPHERAL VASCULAR DISORDER [None]
